FAERS Safety Report 6741096-1 (Version None)
Quarter: 2010Q2

REPORT INFORMATION
  Report Type: 
  Country: None (occurrence: None)
  Receive Date: 20100526
  Receipt Date: 20100514
  Transmission Date: 20101027
  Serious: Yes (Hospitalization, Other)
  Sender: FDA-Public Use
  Company Number: PHHY2010TW03964

PATIENT
  Sex: Male
  Weight: 60 kg

DRUGS (1)
  1. ZOLEDRONATE T29581++BM [Suspect]
     Dosage: 4 MG DAILY
     Route: 041
     Dates: start: 20090212

REACTIONS (6)
  - BLOOD GLUCOSE INCREASED [None]
  - DERMATITIS [None]
  - HAEMATURIA [None]
  - HAEMOGLOBIN DECREASED [None]
  - OCCULT BLOOD POSITIVE [None]
  - URINARY BLADDER HAEMORRHAGE [None]
